FAERS Safety Report 10082049 (Version 1)
Quarter: 2014Q2

REPORT INFORMATION
  Report Type: Spontaneous
  Country: US (occurrence: None)
  Receive Date: 20140414
  Receipt Date: 20140414
  Transmission Date: 20141212
  Serious: No
  Sender: FDA-Public Use
  Company Number: None

PATIENT
  Age: 80 Year
  Sex: Female
  Weight: 65.77 kg

DRUGS (9)
  1. DONEPEZIL HCL [Suspect]
     Indication: DEMENTIA
     Route: 048
     Dates: start: 20140310, end: 20140321
  2. ATORVASTATIN [Concomitant]
  3. PROPAFENONE HCL [Concomitant]
  4. METOPROLOL TARTRATE [Concomitant]
  5. CLOPIDOGREL BISULFATE [Concomitant]
  6. IBANDRONATE SODIUM [Concomitant]
  7. BABY ASPIRIN [Concomitant]
  8. MULTI-VITAMIN [Concomitant]
  9. CALCIUM WITH VITAMIN D [Concomitant]

REACTIONS (2)
  - Somnambulism [None]
  - Abnormal dreams [None]
